FAERS Safety Report 6929114-9 (Version None)
Quarter: 2010Q3

REPORT INFORMATION
  Report Type: 
  Country: None (occurrence: None)
  Receive Date: 20100812
  Receipt Date: 20100804
  Transmission Date: 20110219
  Serious: Yes (Other)
  Sender: FDA-Public Use
  Company Number: 2010JP004560

PATIENT
  Sex: Female

DRUGS (5)
  1. VESICARE [Suspect]
     Dosage: 10 MG, ORAL; 5 MG, ORAL
     Route: 048
     Dates: start: 20100523, end: 20100622
  2. VESICARE [Suspect]
     Dosage: 10 MG, ORAL; 5 MG, ORAL
     Route: 048
     Dates: start: 20100623
  3. FENTANYL [Suspect]
     Indication: PAIN
     Dosage: 2.0 MG,
     Dates: start: 20100623
  4. RISPERDAL (RISPERIDONE) PER ORAL NOS [Concomitant]
  5. WARFARIN SODIUM [Concomitant]

REACTIONS (1)
  - DELIRIUM [None]
